FAERS Safety Report 12431997 (Version 1)
Quarter: 2016Q2

REPORT INFORMATION
  Report Type: Spontaneous
  Country: US (occurrence: US)
  Receive Date: 20160603
  Receipt Date: 20160603
  Transmission Date: 20160815
  Serious: No
  Sender: FDA-Public Use
  Company Number: US-STRIDES ARCOLAB LIMITED-2016SP003463

PATIENT

DRUGS (1)
  1. BUSPIRONE HYDROCHLORIDE TABLETS USP, 10 MG [Suspect]
     Active Substance: BUSPIRONE HYDROCHLORIDE
     Dosage: UNK

REACTIONS (2)
  - Product physical issue [None]
  - Product physical issue [Unknown]
